FAERS Safety Report 9847223 (Version 1)
Quarter: 2014Q1

REPORT INFORMATION
  Report Type: Spontaneous
  Country: KR (occurrence: KR)
  Receive Date: 20140127
  Receipt Date: 20140127
  Transmission Date: 20141002
  Serious: Yes (Other)
  Sender: FDA-Public Use
  Company Number: KR-ABBVIE-13P-090-1176974-00

PATIENT
  Age: 48 Year
  Sex: Male

DRUGS (5)
  1. HUMIRA [Suspect]
     Indication: COLITIS ULCERATIVE
     Dosage: INDUCTION
     Dates: start: 201310
  2. HUMIRA [Suspect]
     Dates: start: 201310
  3. AZATHIOPRINE [Concomitant]
     Indication: PRODUCT USED FOR UNKNOWN INDICATION
  4. PREDNISOLONE [Concomitant]
     Indication: PRODUCT USED FOR UNKNOWN INDICATION
  5. COLAZAL [Concomitant]
     Indication: PRODUCT USED FOR UNKNOWN INDICATION

REACTIONS (4)
  - Pulmonary venous thrombosis [Unknown]
  - Dizziness [Not Recovered/Not Resolved]
  - Chest discomfort [Not Recovered/Not Resolved]
  - Drug hypersensitivity [Unknown]
